FAERS Safety Report 8542762-8 (Version None)
Quarter: 2012Q3

REPORT INFORMATION
  Report Type: 
  Country: None (occurrence: None)
  Receive Date: 20120727
  Receipt Date: 20120717
  Transmission Date: 20120928
  Serious: No
  Sender: FDA-Public Use
  Company Number: US-BIOGENIDEC-2012BI026529

PATIENT
  Age: 29 Year
  Sex: Female

DRUGS (1)
  1. TYSABRI [Suspect]
     Indication: MULTIPLE SCLEROSIS
     Route: 042
     Dates: start: 20100608, end: 20120509

REACTIONS (10)
  - GAIT DISTURBANCE [None]
  - MUSCULOSKELETAL STIFFNESS [None]
  - SPEECH DISORDER [None]
  - DYSPNOEA [None]
  - MEMORY IMPAIRMENT [None]
  - ANXIETY [None]
  - CHEST PAIN [None]
  - MUSCULAR WEAKNESS [None]
  - STRESS [None]
  - CHEST DISCOMFORT [None]
